FAERS Safety Report 20742432 (Version 2)
Quarter: 2022Q2

REPORT INFORMATION
  Report Type: Spontaneous
  Country: ES (occurrence: ES)
  Receive Date: 20220424
  Receipt Date: 20220519
  Transmission Date: 20220721
  Serious: Yes (Life-Threatening, Hospitalization, Other)
  Sender: FDA-Public Use
  Company Number: None

PATIENT
  Age: 21 Year
  Sex: Male
  Weight: 63 kg

DRUGS (7)
  1. IBUPROFEN [Suspect]
     Active Substance: IBUPROFEN
     Indication: Accidental overdose
     Dosage: 12 GRAMS (20 TABLETS), UNIT STRENGTH: 600 MG , THERAPY DURATION : 0  DAYS
     Route: 065
     Dates: start: 20220325, end: 20220325
  2. OMEPRAZOLE [Suspect]
     Active Substance: OMEPRAZOLE
     Indication: Suicide attempt
     Dosage: 280MG (14 CAPSULES), UNIT STRENGTH: 20 MG , THERAPY DURATION : 0 DAYS
     Route: 065
     Dates: start: 20220325, end: 20220325
  3. ACETAMINOPHEN [Suspect]
     Active Substance: ACETAMINOPHEN
     Indication: Overdose
     Dosage: 40 GRAMS (40 TABLETS), UNIT STRENGTH: 1000 MG , THERAPY DURATION : 0 DAYS
     Route: 065
     Dates: start: 20220325, end: 20220325
  4. DESLORATADINE [Suspect]
     Active Substance: DESLORATADINE
     Indication: Suicide attempt
     Dosage: 40MG (8 TABLETS), THERAPY DURATION : 0 DAYS, UNIT STRENGTH : 5 MG
     Route: 065
     Dates: start: 20220325, end: 20220325
  5. DOXYLAMINE [Suspect]
     Active Substance: DOXYLAMINE
     Indication: Suicide attempt
     Dosage: 350MG (14 TABLETS), UNIT STRENGTH: 25 MG , THERAPY DURATION : 0 DAYS
     Route: 065
     Dates: start: 20220325, end: 20220325
  6. PREDNISONE [Suspect]
     Active Substance: PREDNISONE
     Indication: Suicide attempt
     Dosage: THE NUMBER OF TABLETS INGESTED IS NOT KNOWN.UNIT STRENGTH: 30 MG , THERAPY DURATION : 0 DAYS
     Route: 065
     Dates: start: 20220325, end: 20220325
  7. DIAZEPAM [Suspect]
     Active Substance: DIAZEPAM
     Indication: Suicide attempt
     Dosage: 150MG (30 TABLETS), UNIT STRENGTH: 5 MG , THERAPY DURATION : 0 DAYS
     Route: 065
     Dates: start: 20220325, end: 20220325

REACTIONS (2)
  - Suicide attempt [Recovering/Resolving]
  - Depressed level of consciousness [Recovered/Resolved]

NARRATIVE: CASE EVENT DATE: 20220325
